FAERS Safety Report 20567547 (Version 2)
Quarter: 2022Q2

REPORT INFORMATION
  Report Type: Spontaneous
  Country: JP (occurrence: JP)
  Receive Date: 20220308
  Receipt Date: 20220413
  Transmission Date: 20220720
  Serious: No
  Sender: FDA-Public Use
  Company Number: JP-PFIZER INC-202200354735

PATIENT

DRUGS (1)
  1. PAXLOVID [Suspect]
     Active Substance: NIRMATRELVIR\RITONAVIR
     Indication: COVID-19 treatment

REACTIONS (1)
  - No adverse event [Unknown]
